FAERS Safety Report 10249170 (Version 1)
Quarter: 2014Q2

REPORT INFORMATION
  Report Type: Spontaneous
  Country: US (occurrence: US)
  Receive Date: 20140620
  Receipt Date: 20140620
  Transmission Date: 20141212
  Serious: No
  Sender: FDA-Public Use
  Company Number: US-TEVA-489342USA

PATIENT
  Age: 39 Year
  Sex: Female

DRUGS (1)
  1. COPAXONE [Suspect]
     Dosage: 20 MILLIGRAM DAILY;
     Route: 058
     Dates: start: 20130918, end: 20140604

REACTIONS (1)
  - Dyspnoea [Unknown]
